FAERS Safety Report 24708032 (Version 1)
Quarter: 2024Q4

REPORT INFORMATION
  Report Type: Spontaneous
  Country: AU (occurrence: AU)
  Receive Date: 20241206
  Receipt Date: 20241206
  Transmission Date: 20250114
  Serious: Yes (Other)
  Sender: PFIZER
  Company Number: AU-PFIZER INC-202400315779

PATIENT
  Age: 52 Year

DRUGS (1)
  1. ENBREL [Suspect]
     Active Substance: ETANERCEPT

REACTIONS (3)
  - Needle issue [Unknown]
  - Product leakage [Unknown]
  - Drug dose omission by device [Unknown]
